FAERS Safety Report 11374808 (Version 1)
Quarter: 2015Q3

REPORT INFORMATION
  Report Type: Report from Study
  Country: DE (occurrence: DE)
  Receive Date: 20150813
  Receipt Date: 20150813
  Transmission Date: 20151125
  Serious: Yes (Hospitalization)
  Sender: FDA-Public Use
  Company Number: DE-UCBSA-2015025182

PATIENT
  Age: 74 Year
  Sex: Female

DRUGS (1)
  1. ROTIGOTINE [Suspect]
     Active Substance: ROTIGOTINE
     Indication: RESTLESS LEGS SYNDROME
     Dosage: 3 MG, ONCE DAILY (QD)
     Route: 062
     Dates: start: 20120729

REACTIONS (5)
  - Pleural effusion [Unknown]
  - Humerus fracture [Recovering/Resolving]
  - Dyspnoea [Unknown]
  - Fall [Unknown]
  - Immobile [Unknown]

NARRATIVE: CASE EVENT DATE: 20150629
